FAERS Safety Report 6884623-6 (Version None)
Quarter: 2010Q3

REPORT INFORMATION
  Report Type: 
  Country: None (occurrence: None)
  Receive Date: 20100729
  Receipt Date: 20070726
  Transmission Date: 20110219
  Serious: No
  Sender: FDA-Public Use
  Company Number: US-PFIZER INC-2007061737

PATIENT
  Age: 70 Year
  Sex: Female
  Weight: 61.23 kg

DRUGS (2)
  1. CELEBREX [Suspect]
     Indication: PAIN
  2. LIPITOR [Concomitant]
     Indication: BLOOD CHOLESTEROL

REACTIONS (2)
  - RASH ERYTHEMATOUS [None]
  - ROSACEA [None]
